FAERS Safety Report 5383588-6 (Version None)
Quarter: 2007Q3

REPORT INFORMATION
  Report Type: 
  Country: None (occurrence: None)
  Receive Date: 20070706
  Receipt Date: 20070629
  Transmission Date: 20080115
  Serious: Yes (Death)
  Sender: FDA-Public Use
  Company Number: 2007-02186

PATIENT
  Age: 61 Year
  Sex: Female
  Weight: 53 kg

DRUGS (13)
  1. VELCADE [Suspect]
     Indication: MULTIPLE MYELOMA
     Dosage: SEE IMAGE
     Route: 042
     Dates: start: 20070223, end: 20070305
  2. VELCADE [Suspect]
     Indication: MULTIPLE MYELOMA
     Dosage: SEE IMAGE
     Route: 042
     Dates: start: 20070319, end: 20070329
  3. VELCADE [Suspect]
     Indication: MULTIPLE MYELOMA
     Dosage: SEE IMAGE
     Route: 042
     Dates: end: 20070614
  4. ORGADRONE (DEXAMETHASONE SODIUM PHOSPHATE) [Concomitant]
  5. ASPIRIN [Concomitant]
  6. LASIX [Concomitant]
  7. KYTRIL [Concomitant]
  8. ALLOPURINOL [Concomitant]
  9. EPOGEN [Concomitant]
  10. MAXIPIME [Concomitant]
  11. HYDROCORTISONE SODIUM SUCCINATE [Concomitant]
  12. MEROPEN (MEROPENEM) [Concomitant]
  13. FUNGUARD [Concomitant]

REACTIONS (1)
  - HEPATITIS [None]
